FAERS Safety Report 6910639-7 (Version None)
Quarter: 2010Q3

REPORT INFORMATION
  Report Type: 
  Country: None (occurrence: None)
  Receive Date: 20100806
  Receipt Date: 20100727
  Transmission Date: 20110219
  Serious: Yes (Death, Other)
  Sender: FDA-Public Use
  Company Number: US-PFIZER INC-2006007845

PATIENT
  Sex: Male

DRUGS (7)
  1. NEURONTIN [Suspect]
     Dosage: 100 MG, UNK
     Dates: start: 20021009
  2. NEURONTIN [Suspect]
     Dosage: 300 MG, 2X/DAY
     Dates: start: 20030205
  3. NEURONTIN [Suspect]
     Dosage: 600 MG, UNK
     Dates: start: 20030215
  4. WELLBUTRIN SR [Suspect]
     Dosage: 150 MG, 2X/DAY
  5. REMERON [Concomitant]
     Dosage: 50 MG, 1X/DAY, AT BED TIME
     Route: 048
  6. INDERAL [Concomitant]
     Dosage: 20 MG, 2X/DAY
  7. ATENOLOL [Concomitant]
     Dosage: 25 MG, 1X/DAY

REACTIONS (6)
  - ALCOHOLISM [None]
  - DRUG INEFFECTIVE [None]
  - HEPATIC CIRRHOSIS [None]
  - HYPERTENSIVE HEART DISEASE [None]
  - INTENTIONAL OVERDOSE [None]
  - SUICIDE ATTEMPT [None]
